FAERS Safety Report 7991903-X (Version None)
Quarter: 2011Q4

REPORT INFORMATION
  Report Type: 
  Country: None (occurrence: None)
  Receive Date: 20111219
  Receipt Date: 20111213
  Transmission Date: 20120403
  Serious: Yes (Hospitalization)
  Sender: FDA-Public Use
  Company Number: JP-EISAI INC-E2090-01678-SPO-JP

PATIENT
  Age: 22 Year
  Sex: Female

DRUGS (1)
  1. ZONISAMIDE [Suspect]
     Indication: EPILEPSY
     Route: 048
     Dates: start: 20110608, end: 20110621

REACTIONS (6)
  - DECREASED APPETITE [None]
  - SOMNOLENCE [None]
  - HYPOPITUITARISM [None]
  - POLLAKIURIA [None]
  - POLYURIA [None]
  - SCHIZOPHRENIFORM DISORDER [None]
